FAERS Safety Report 6817087-9 (Version None)
Quarter: 2010Q3

REPORT INFORMATION
  Report Type: 
  Country: None (occurrence: None)
  Receive Date: 20100706
  Receipt Date: 20080423
  Transmission Date: 20110219
  Serious: No
  Sender: FDA-Public Use
  Company Number: US-PFIZER INC-2006097182

PATIENT
  Sex: Female
  Weight: 65.77 kg

DRUGS (5)
  1. TIKOSYN [Suspect]
     Indication: ATRIAL FIBRILLATION
     Dates: start: 20051101
  2. DILTIAZEM [Suspect]
     Indication: HEART RATE IRREGULAR
  3. CARDIZEM [Suspect]
     Indication: HEART RATE IRREGULAR
  4. ACETYLSALICYLIC ACID [Suspect]
     Dates: end: 20060101
  5. WARFARIN [Concomitant]
     Dates: start: 20060101

REACTIONS (1)
  - FATIGUE [None]
